FAERS Safety Report 18088925 (Version 1)
Quarter: 2020Q3

REPORT INFORMATION
  Report Type: Report from Study
  Country: NL (occurrence: NL)
  Receive Date: 20200730
  Receipt Date: 20200730
  Transmission Date: 20201103
  Serious: Yes (Other)
  Sender: FDA-Public Use
  Company Number: NL-JNJFOC-20200727007

PATIENT
  Age: 18 Year
  Sex: Female

DRUGS (5)
  1. STELARA [Suspect]
     Active Substance: USTEKINUMAB
     Indication: CROHN^S DISEASE
     Route: 058
     Dates: start: 20191204, end: 20200129
  2. FERROFUMARAAT [Concomitant]
     Active Substance: FERROUS FUMARATE
     Dates: start: 20191028
  3. MESALAZINE [Concomitant]
     Active Substance: MESALAMINE
     Dosage: 2000/3MG
     Dates: start: 20191104, end: 20191113
  4. ESOMEPRAZOL                        /01479301/ [Concomitant]
     Active Substance: ESOMEPRAZOLE
     Dates: start: 20190808
  5. BECLOMETHASONE                     /00212602/ [Concomitant]
     Active Substance: BECLOMETHASONE
     Dosage: 2000/3MG
     Dates: start: 20191104, end: 20191113

REACTIONS (3)
  - Cytomegalovirus infection [Recovered/Resolved]
  - Off label use [Unknown]
  - Product use issue [Unknown]

NARRATIVE: CASE EVENT DATE: 2019
